FAERS Safety Report 7477076-0 (Version None)
Quarter: 2011Q2

REPORT INFORMATION
  Report Type: 
  Country: None (occurrence: None)
  Receive Date: 20110512
  Receipt Date: 20110419
  Transmission Date: 20111010
  Serious: Yes (Other)
  Sender: FDA-Public Use
  Company Number: US-AMGEN-USASP2011014721

PATIENT
  Age: 44 Year
  Sex: Female

DRUGS (3)
  1. ENBREL [Suspect]
     Indication: PSORIASIS
     Dosage: UNK
     Dates: start: 20060101, end: 20060101
  2. ENBREL [Suspect]
     Indication: ARTHRITIS
     Dosage: UNK
     Dates: start: 20110316
  3. ENBREL [Suspect]
     Dosage: UNK
     Dates: start: 20051122

REACTIONS (1)
  - ABORTION SPONTANEOUS [None]
